FAERS Safety Report 14892183 (Version 1)
Quarter: 2018Q2

REPORT INFORMATION
  Report Type: Spontaneous
  Country: US (occurrence: US)
  Receive Date: 20180426
  Receipt Date: 20180426
  Transmission Date: 20180711
  Serious: Yes (Other)
  Sender: FDA-Public Use
  Company Number: None

PATIENT
  Age: 54 Year
  Sex: Female

DRUGS (1)
  1. ZILEUTON ER [Suspect]
     Active Substance: ZILEUTON
     Indication: ASTHMA
     Route: 048
     Dates: start: 20171016, end: 20180426

REACTIONS (2)
  - Abdominal pain upper [None]
  - Hepatic enzyme increased [None]

NARRATIVE: CASE EVENT DATE: 20180426
